FAERS Safety Report 9914358 (Version 3)
Quarter: 2014Q1

REPORT INFORMATION
  Report Type: Spontaneous
  Country: GR (occurrence: GR)
  Receive Date: 20140220
  Receipt Date: 20140320
  Transmission Date: 20141002
  Serious: Yes (Other)
  Sender: FDA-Public Use
  Company Number: GR-ELI_LILLY_AND_COMPANY-GR201402004140

PATIENT
  Age: 78 Year
  Sex: Male

DRUGS (3)
  1. CYMBALTA [Suspect]
     Indication: ANXIETY
     Dosage: 30 MG, QD
     Route: 048
     Dates: start: 20140131, end: 20140204
  2. CO-APROVEL [Concomitant]
     Indication: HYPERTENSION
     Dosage: UNK
     Route: 048
  3. LOPRESSOR [Concomitant]
     Indication: HYPERTENSION
     Dosage: UNK
     Route: 048

REACTIONS (5)
  - Oedema peripheral [Recovered/Resolved]
  - Movement disorder [Recovered/Resolved]
  - Hypertension [Recovered/Resolved]
  - Dysuria [Recovered/Resolved]
  - Intentional drug misuse [Recovered/Resolved]
